FAERS Safety Report 7077583-9 (Version None)
Quarter: 2010Q4

REPORT INFORMATION
  Report Type: 
  Country: None (occurrence: None)
  Receive Date: 20101101
  Receipt Date: 20101022
  Transmission Date: 20110411
  Serious: Yes (Hospitalization)
  Sender: FDA-Public Use
  Company Number: US-ALEXION-A201001213

PATIENT
  Sex: Female

DRUGS (3)
  1. SOLIRIS [Suspect]
     Indication: PAROXYSMAL NOCTURNAL HAEMOGLOBINURIA
     Dosage: UNK
     Route: 042
  2. LITHIUM [Suspect]
  3. VITAMIN TAB [Concomitant]
     Dosage: UNK
     Route: 048

REACTIONS (7)
  - ALOPECIA [None]
  - BLOOD THYROID STIMULATING HORMONE INCREASED [None]
  - DIARRHOEA [None]
  - MIGRAINE [None]
  - NAUSEA [None]
  - VITAMIN B12 DEFICIENCY [None]
  - VOMITING [None]
